FAERS Safety Report 13922493 (Version 1)
Quarter: 2017Q3

REPORT INFORMATION
  Report Type: Report from Study
  Country: JP (occurrence: JP)
  Receive Date: 20170830
  Receipt Date: 20170830
  Transmission Date: 20171127
  Serious: Yes (Death)
  Sender: FDA-Public Use
  Company Number: JP-MYLANLABS-2017M1053558

PATIENT

DRUGS (3)
  1. CARBOPLATIN. [Suspect]
     Active Substance: CARBOPLATIN
     Indication: NON-SMALL CELL LUNG CANCER
     Dosage: FOUR CYCLES OF INDUCTION THERAPY ON DAY 1, EVERY 4 WEEKS
     Route: 065
  2. TS-1 [Suspect]
     Active Substance: GIMERACIL\OTERACIL\TEGAFUR
     Indication: NON-SMALL CELL LUNG CANCER
     Dosage: FOUR CYCLES OF INDUCTION THERAPY WITH 40 MG/M2 TWICE DAILY FOR 2 WEEKS FOLLOWED BY
     Route: 048
  3. TS-1 [Suspect]
     Active Substance: GIMERACIL\OTERACIL\TEGAFUR
     Dosage: FOLLOWED BY MAINTENANCE THERAPY WITH 40 MG/M2 TWICE DAILY FOR 2 WEEKS, EVERY 4 WEEKS
     Route: 048

REACTIONS (2)
  - Pneumonia aspiration [Fatal]
  - Febrile neutropenia [Fatal]
